FAERS Safety Report 15509665 (Version 1)
Quarter: 2018Q4

REPORT INFORMATION
  Report Type: Spontaneous
  Country: US (occurrence: US)
  Receive Date: 20181010
  Receipt Date: 20181010
  Transmission Date: 20190205
  Serious: Yes (Hospitalization)
  Sender: FDA-Public Use
  Company Number: None

PATIENT
  Age: 45 Year
  Sex: Female

DRUGS (3)
  1. OMNITROPE [Suspect]
     Active Substance: SOMATROPIN
     Indication: GROWTH HORMONE DEFICIENCY
     Route: 058
     Dates: start: 20180915, end: 20181008
  2. LISINOPRIL. [Concomitant]
     Active Substance: LISINOPRIL
  3. NIFEDIPINE. [Concomitant]
     Active Substance: NIFEDIPINE

REACTIONS (5)
  - Blood pressure increased [None]
  - Bone pain [None]
  - Chest discomfort [None]
  - Musculoskeletal discomfort [None]
  - Discomfort [None]

NARRATIVE: CASE EVENT DATE: 20181008
